FAERS Safety Report 7721214-9 (Version None)
Quarter: 2011Q3

REPORT INFORMATION
  Report Type: 
  Country: None (occurrence: None)
  Receive Date: 20110831
  Receipt Date: 20110826
  Transmission Date: 20111222
  Serious: Yes (Other)
  Sender: FDA-Public Use
  Company Number: US-B.I. PHARMACEUTICALS,INC./RIDGEFIELD-2011-BP-20917BP

PATIENT
  Age: 86 Year
  Sex: Female

DRUGS (10)
  1. PRADAXA [Suspect]
     Indication: ATRIAL FIBRILLATION
     Dosage: 300 MG
     Route: 048
     Dates: start: 20110101, end: 20110101
  2. NITROGLYCERIN [Concomitant]
     Indication: OESOPHAGEAL DISCOMFORT
     Route: 048
  3. PRADAXA [Suspect]
     Dosage: 300 MG
     Route: 048
     Dates: start: 20110101
  4. DIGESTIVE ENZYMES [Concomitant]
     Indication: ENZYME ABNORMALITY
     Route: 048
  5. UNSPECIFIED VITAMINS [Concomitant]
     Indication: MACULAR DEGENERATION
  6. NEXIUM [Concomitant]
     Indication: ABDOMINAL DISCOMFORT
     Route: 048
  7. COUMADIN [Concomitant]
     Route: 048
     Dates: start: 20110101
  8. METHIMAZOLE [Concomitant]
     Indication: THYROID DISORDER
     Route: 048
     Dates: start: 20090101
  9. ATIVAN [Concomitant]
     Indication: INSOMNIA
     Route: 048
  10. COUMADIN [Concomitant]
     Indication: ATRIAL FIBRILLATION
     Route: 048
     Dates: start: 20110101

REACTIONS (5)
  - RETINAL HAEMORRHAGE [None]
  - MUSCULOSKELETAL CHEST PAIN [None]
  - SQUAMOUS CELL CARCINOMA [None]
  - FALL [None]
  - DYSPEPSIA [None]
